FAERS Safety Report 16931298 (Version 1)
Quarter: 2019Q4

REPORT INFORMATION
  Report Type: Other
  Country: US (occurrence: US)
  Receive Date: 20191017
  Receipt Date: 20191017
  Transmission Date: 20200122
  Serious: Yes (Other)
  Sender: FDA-Public Use
  Company Number: US-INTERCEPT-PM2019001730

PATIENT
  Age: 55 Year
  Sex: Male

DRUGS (1)
  1. OCALIVA [Suspect]
     Active Substance: OBETICHOLIC ACID
     Indication: PRIMARY BILIARY CHOLANGITIS
     Dosage: 5 MG, QD
     Route: 048
     Dates: start: 20190909, end: 20191003

REACTIONS (11)
  - Hypersensitivity [Unknown]
  - Rash [Unknown]
  - Fatigue [Unknown]
  - Dizziness [Unknown]
  - Furuncle [Unknown]
  - Pruritus [Unknown]
  - Dyspnoea [Unknown]
  - Myalgia [Unknown]
  - Gait disturbance [Unknown]
  - Insomnia [Unknown]
  - Urticaria [Unknown]

NARRATIVE: CASE EVENT DATE: 20190915
